FAERS Safety Report 5300206-3 (Version None)
Quarter: 2007Q2

REPORT INFORMATION
  Report Type: 
  Country: None (occurrence: None)
  Receive Date: 20070418
  Receipt Date: 20070411
  Transmission Date: 20071010
  Serious: Yes (Other)
  Sender: FDA-Public Use
  Company Number: PHBS2007US06533

PATIENT
  Age: 64 Year
  Sex: Female

DRUGS (7)
  1. ZOMETA [Suspect]
     Indication: METASTASES TO BONE
     Dosage: EVERY 3 WEEKS
     Route: 042
     Dates: start: 20050201
  2. LETROZOLE [Concomitant]
  3. ANASTROZOLE [Concomitant]
  4. FASLODEX [Concomitant]
  5. TAXOTERE [Concomitant]
     Dosage: 12 CYCLES
  6. DOXORUBICIN HCL [Concomitant]
     Dosage: 6 CYCLES
  7. PAMIDRONATE DISODIUM [Suspect]
     Indication: METASTASES TO BONE
     Dosage: 90 MG, AS 3-HOUR INFUSION/MONTH
     Route: 042
     Dates: end: 20050201

REACTIONS (11)
  - ACTINOMYCOTIC SKIN INFECTION [None]
  - BONE DEBRIDEMENT [None]
  - BONE DISORDER [None]
  - FACIAL PAIN [None]
  - IMPAIRED HEALING [None]
  - MUCOSAL MEMBRANE HYPERPLASIA [None]
  - OSTEONECROSIS [None]
  - PAIN IN JAW [None]
  - PALATAL DISORDER [None]
  - SINUSITIS [None]
  - STOMATITIS [None]
